FAERS Safety Report 11369122 (Version 3)
Quarter: 2015Q4

REPORT INFORMATION
  Report Type: Spontaneous
  Country: JP (occurrence: JP)
  Receive Date: 20150812
  Receipt Date: 20151106
  Transmission Date: 20160304
  Serious: Yes (Other)
  Sender: FDA-Public Use
  Company Number: JP-AMGEN-JPNSP2015080998

PATIENT
  Age: 83 Year
  Sex: Female
  Weight: 38 kg

DRUGS (2)
  1. FASLODEX [Concomitant]
     Active Substance: FULVESTRANT
     Indication: BREAST CANCER
     Dosage: 500 MG, QD
     Route: 030
     Dates: start: 20141006, end: 20141208
  2. RANMARK [Suspect]
     Active Substance: DENOSUMAB
     Indication: METASTASES TO BONE
     Dosage: 120 MG, Q4WK
     Route: 065
     Dates: start: 20120910, end: 20150316

REACTIONS (2)
  - Blood calcium increased [Recovering/Resolving]
  - Osteonecrosis of jaw [Unknown]

NARRATIVE: CASE EVENT DATE: 201505
